FAERS Safety Report 11857656 (Version 1)
Quarter: 2015Q4

REPORT INFORMATION
  Report Type: Spontaneous
  Country: US (occurrence: None)
  Receive Date: 20151221
  Receipt Date: 20151221
  Transmission Date: 20160305
  Serious: Yes (Life-Threatening, Hospitalization)
  Sender: FDA-Public Use
  Company Number: None

PATIENT
  Age: 59 Year
  Sex: Male
  Weight: 77 kg

DRUGS (2)
  1. RITUXAN [Concomitant]
     Active Substance: RITUXIMAB
  2. BENDAMUSTINE [Suspect]
     Active Substance: BENDAMUSTINE
     Indication: CHRONIC LYMPHOCYTIC LEUKAEMIA
     Dates: start: 20150513, end: 20150922

REACTIONS (5)
  - Nephrogenic diabetes insipidus [None]
  - Hypernatraemia [None]
  - Polyuria [None]
  - Urosepsis [None]
  - Polydipsia [None]

NARRATIVE: CASE EVENT DATE: 20151215
